FAERS Safety Report 9022865 (Version 1)
Quarter: 2013Q1

REPORT INFORMATION
  Report Type: Spontaneous
  Country: US (occurrence: US)
  Receive Date: 20130120
  Receipt Date: 20130120
  Transmission Date: 20140127
  Serious: No
  Sender: FDA-Public Use
  Company Number: US-ALLERGAN-1216930US

PATIENT
  Sex: Female

DRUGS (8)
  1. BOTOX COSMETIC [Suspect]
     Indication: SKIN WRINKLING
     Dosage: UNK, SINGLE
     Route: 030
     Dates: start: 201210, end: 201210
  2. BOTOX COSMETIC [Suspect]
     Indication: SKIN WRINKLING
  3. BOTOX COSMETIC [Suspect]
     Indication: SKIN WRINKLING
  4. SYNTHROID [Concomitant]
     Indication: THYROID NEOPLASM
     Dosage: 0.112 ?G, QD
     Route: 048
  5. ADVAIR INHALER [Concomitant]
     Indication: ASTHMA
     Dosage: UNK, QD
     Route: 055
  6. CLARITIN [Concomitant]
     Indication: SEASONAL ALLERGY
     Dosage: UNK, PRN
     Route: 048
  7. ZANTAC [Concomitant]
     Indication: GASTROOESOPHAGEAL REFLUX DISEASE
     Dosage: 40 MG, PRN
     Route: 048
  8. MELOXICAM [Concomitant]
     Indication: PERIARTHRITIS
     Dosage: 15 MG, QD
     Route: 048

REACTIONS (1)
  - Muscle spasms [Not Recovered/Not Resolved]
